FAERS Safety Report 5496535-3 (Version None)
Quarter: 2007Q4

REPORT INFORMATION
  Report Type: 
  Country: None (occurrence: None)
  Receive Date: 20071025
  Receipt Date: 20070612
  Transmission Date: 20080405
  Serious: No
  Sender: FDA-Public Use
  Company Number: A0655271A

PATIENT
  Age: 81 Year
  Sex: Female

DRUGS (2)
  1. ADVAIR DISKUS 100/50 [Suspect]
     Indication: CHRONIC OBSTRUCTIVE PULMONARY DISEASE
     Dosage: 1PUFF TWICE PER DAY
     Route: 055
     Dates: start: 20070526, end: 20070611
  2. ATENOLOL [Concomitant]

REACTIONS (5)
  - ASTHENIA [None]
  - ERYTHEMA [None]
  - NAUSEA [None]
  - SWELLING FACE [None]
  - TREMOR [None]
